FAERS Safety Report 4696859-3 (Version None)
Quarter: 2005Q2

REPORT INFORMATION
  Report Type: 
  Country: None (occurrence: None)
  Receive Date: 20050622
  Receipt Date: 20050509
  Transmission Date: 20051028
  Serious: Yes (Other)
  Sender: FDA-Public Use
  Company Number: US-AMGEN-US132092

PATIENT
  Sex: Female
  Weight: 69 kg

DRUGS (8)
  1. NEULASTA [Suspect]
     Indication: CHEMOTHERAPY
     Dates: start: 20050125, end: 20050502
  2. BLEOMYCIN [Suspect]
     Dates: start: 20041228
  3. ADRIAMYCIN PFS [Suspect]
     Dates: start: 20041228
  4. VELBAN [Suspect]
     Dates: start: 20041228
  5. DACARBAZINE [Suspect]
     Dates: start: 20041228
  6. ATIVAN [Concomitant]
  7. PREDNISONE TAB [Concomitant]
  8. DECADRON [Concomitant]

REACTIONS (3)
  - DYSPNOEA [None]
  - PULMONARY FUNCTION TEST DECREASED [None]
  - PULMONARY TOXICITY [None]
